FAERS Safety Report 8152239-X (Version None)
Quarter: 2012Q1

REPORT INFORMATION
  Report Type: 
  Country: None (occurrence: None)
  Receive Date: 20120215
  Receipt Date: 20120215
  Transmission Date: 20120608
  Serious: Yes (Hospitalization)
  Sender: FDA-Public Use
  Company Number: None

PATIENT
  Sex: Female
  Weight: 104 kg

DRUGS (4)
  1. FEROUSE SULFATE [Concomitant]
  2. TAXOTERE [Suspect]
     Dosage: 160 MG
     Dates: end: 20110922
  3. CARBOPLATIN [Suspect]
     Dosage: 394 MG
     Dates: end: 20110922
  4. DOCUSATE SODIUM [Concomitant]

REACTIONS (7)
  - NEUTROPHIL COUNT DECREASED [None]
  - PYREXIA [None]
  - ANAEMIA [None]
  - HYPOKALAEMIA [None]
  - HYPOMAGNESAEMIA [None]
  - ASTHENIA [None]
  - DIARRHOEA [None]
